FAERS Safety Report 4688969-1 (Version None)
Quarter: 2005Q2

REPORT INFORMATION
  Report Type: 
  Country: None (occurrence: None)
  Receive Date: 20050613
  Receipt Date: 20050310
  Transmission Date: 20051028
  Serious: Yes (Hospitalization)
  Sender: FDA-Public Use
  Company Number: US-MERCK-0503USA02365

PATIENT
  Age: 49 Year
  Sex: Male
  Weight: 102 kg

DRUGS (18)
  1. VIOXX [Suspect]
     Indication: BACK PAIN
     Route: 048
     Dates: start: 19991018, end: 20020401
  2. VIOXX [Suspect]
     Indication: SHOULDER PAIN
     Route: 048
     Dates: start: 19991018, end: 20020401
  3. LIPITOR [Concomitant]
     Route: 065
  4. ZOLOFT [Concomitant]
     Route: 065
  5. PROPECIA [Concomitant]
     Route: 065
  6. BIAXIN [Concomitant]
     Route: 065
  7. NIASPAN [Concomitant]
     Route: 065
  8. ASPIRIN [Concomitant]
     Route: 065
  9. PREVACID [Concomitant]
     Route: 065
  10. ALLEGRA [Concomitant]
     Route: 065
  11. CARISOPRODOL [Concomitant]
     Route: 065
  12. TRAZODONE HYDROCHLORIDE [Concomitant]
     Route: 065
  13. NEOMYCIN [Concomitant]
     Route: 065
  14. FOLIC ACID [Concomitant]
     Route: 065
  15. WELLBUTRIN [Concomitant]
     Route: 065
  16. METRONIDAZOLE [Concomitant]
     Route: 065
  17. NEXIUM [Concomitant]
     Route: 065
  18. ZYRTEC [Concomitant]
     Route: 065

REACTIONS (6)
  - ALCOHOLISM [None]
  - BLOOD PRESSURE INCREASED [None]
  - DEPRESSION SUICIDAL [None]
  - HELICOBACTER PYLORI IDENTIFICATION TEST POSITIVE [None]
  - MYOCARDIAL INFARCTION [None]
  - OESOPHAGEAL SPASM [None]
